FAERS Safety Report 8919341 (Version 2)
Quarter: 2014Q2

REPORT INFORMATION
  Report Type: Spontaneous
  Country: US (occurrence: US)
  Receive Date: 20121121
  Receipt Date: 20131213
  Transmission Date: 20141212
  Serious: No
  Sender: FDA-Public Use
  Company Number: US-GLAXOSMITHKLINE-A0988102A

PATIENT
  Sex: 0

DRUGS (1)
  1. ARZERRA [Suspect]

REACTIONS (1)
  - Drug ineffective [Unknown]
